FAERS Safety Report 6499772-4 (Version None)
Quarter: 2009Q4

REPORT INFORMATION
  Report Type: 
  Country: None (occurrence: None)
  Receive Date: 20091214
  Receipt Date: 20091130
  Transmission Date: 20100525
  Serious: Yes (Other)
  Sender: FDA-Public Use
  Company Number: DSA_03110_2009

PATIENT
  Age: 69 Year
  Sex: Female

DRUGS (1)
  1. VANIQA [Suspect]
     Indication: HAIR GROWTH ABNORMAL
     Dosage: (13.9 % BID TOPICAL)
     Route: 061
     Dates: start: 20090701

REACTIONS (1)
  - BREAST CANCER FEMALE [None]
